FAERS Safety Report 5892996-6 (Version None)
Quarter: 2008Q3

REPORT INFORMATION
  Report Type: 
  Country: None (occurrence: None)
  Receive Date: 20080923
  Receipt Date: 20080124
  Transmission Date: 20090109
  Serious: No
  Sender: FDA-Public Use
  Company Number: US-ASTRAZENECA-2007UW14062

PATIENT
  Age: 32361 Day
  Sex: Male
  Weight: 80.5 kg

DRUGS (3)
  1. SEROQUEL [Suspect]
     Indication: SLEEP DISORDER
     Route: 048
     Dates: start: 20050305, end: 20070501
  2. RISPERDAL [Concomitant]
     Dates: start: 20050519, end: 20050619
  3. ZYPREXA [Concomitant]
     Dates: start: 20050909, end: 20051009

REACTIONS (2)
  - DEMENTIA [None]
  - TYPE 2 DIABETES MELLITUS [None]
